FAERS Safety Report 12081030 (Version 1)
Quarter: 2016Q1

REPORT INFORMATION
  Report Type: Spontaneous
  Country: US (occurrence: US)
  Receive Date: 20160216
  Receipt Date: 20160216
  Transmission Date: 20160526
  Serious: No
  Sender: FDA-Public Use
  Company Number: US-PFIZER INC-2016029882

PATIENT
  Age: 57 Year
  Sex: Female

DRUGS (1)
  1. CHANTIX [Suspect]
     Active Substance: VARENICLINE TARTRATE
     Indication: SMOKING CESSATION THERAPY
     Dosage: 2 DF, DAILY

REACTIONS (7)
  - Feeling abnormal [Unknown]
  - Drug effect decreased [Unknown]
  - Product taste abnormal [Unknown]
  - Dyspnoea [Unknown]
  - Suspected counterfeit product [Unknown]
  - Product solubility abnormal [Unknown]
  - Mood altered [Unknown]
